FAERS Safety Report 5400836-4 (Version None)
Quarter: 2007Q3

REPORT INFORMATION
  Report Type: 
  Country: None (occurrence: None)
  Receive Date: 20070725
  Receipt Date: 20070718
  Transmission Date: 20080115
  Serious: Yes (Hospitalization)
  Sender: FDA-Public Use
  Company Number: 163-21880-07070951

PATIENT
  Age: 60 Year
  Sex: Male

DRUGS (2)
  1. REVLIMID [Suspect]
     Indication: MULTIPLE MYELOMA
     Dosage: 10 MG, DAILY FOR 21 DAYS, ORAL; 25 MG, DAILY FOR 21 DAYS, ORAL
     Route: 048
     Dates: start: 20070301, end: 20070501
  2. REVLIMID [Suspect]
     Indication: MULTIPLE MYELOMA
     Dosage: 10 MG, DAILY FOR 21 DAYS, ORAL; 25 MG, DAILY FOR 21 DAYS, ORAL
     Route: 048
     Dates: start: 20070701

REACTIONS (1)
  - CARDIOACTIVE DRUG LEVEL INCREASED [None]
